FAERS Safety Report 5581462-3 (Version None)
Quarter: 2008Q1

REPORT INFORMATION
  Report Type: 
  Country: None (occurrence: None)
  Receive Date: 20080104
  Receipt Date: 20080102
  Transmission Date: 20080703
  Serious: No
  Sender: FDA-Public Use
  Company Number: FR-PFIZER INC-2007032061

PATIENT
  Sex: Female

DRUGS (3)
  1. ATARAX [Suspect]
     Dosage: TEXT:1 DF
     Route: 048
  2. ZOLOFT [Suspect]
     Dosage: TEXT:1 DF
     Route: 048
  3. XANAX [Concomitant]

REACTIONS (1)
  - NO ADVERSE EVENT [None]
